FAERS Safety Report 8372717-8 (Version None)
Quarter: 2012Q2

REPORT INFORMATION
  Report Type: 
  Country: None (occurrence: None)
  Receive Date: 20120521
  Receipt Date: 20120517
  Transmission Date: 20120825
  Serious: Yes (Hospitalization)
  Sender: FDA-Public Use
  Company Number: US-BAYER-2011-092195

PATIENT
  Age: 19 Year
  Sex: Female
  Weight: 140.14 kg

DRUGS (7)
  1. YAZ [Suspect]
     Indication: MENSTRUAL DISORDER
  2. DROSPIRENONE AND ETHINYL ESTRADIOL [Suspect]
     Indication: ORAL CONTRACEPTION
     Dosage: UNK
     Dates: start: 20100323, end: 20100911
  3. FENOFIBRATE [Concomitant]
     Indication: BLOOD CHOLESTEROL INCREASED
     Dosage: 160 MG, UNK
     Route: 048
     Dates: start: 20090903, end: 20100806
  4. LOFIBRA [Concomitant]
  5. YAZ [Suspect]
     Indication: ORAL CONTRACEPTION
     Dosage: UNK
     Dates: start: 20081004, end: 20100323
  6. DROSPIRENONE AND ETHINYL ESTRADIOL [Suspect]
     Indication: MENSTRUAL DISORDER
  7. FEXOFENADINE [Concomitant]
     Indication: MULTIPLE ALLERGIES
     Dosage: 60 MG, UNK
     Route: 048
     Dates: start: 20070323, end: 20100806

REACTIONS (2)
  - DEEP VEIN THROMBOSIS [None]
  - INJURY [None]
